FAERS Safety Report 6544318-5 (Version None)
Quarter: 2010Q1

REPORT INFORMATION
  Report Type: 
  Country: None (occurrence: None)
  Receive Date: 20100120
  Receipt Date: 20100120
  Transmission Date: 20100710
  Serious: No
  Sender: FDA-Public Use
  Company Number: None

PATIENT
  Age: 25 Year
  Sex: Female
  Weight: 58.9676 kg

DRUGS (6)
  1. INVEGA [Suspect]
     Indication: BIPOLAR DISORDER
     Dosage: 2 TABLETS ONCE DAILY PO
     Route: 048
     Dates: start: 20100112, end: 20100118
  2. INVEGA [Suspect]
     Indication: SCHIZOAFFECTIVE DISORDER
     Dosage: 2 TABLETS ONCE DAILY PO
     Route: 048
     Dates: start: 20100112, end: 20100118
  3. DIVALPROEX DR [Concomitant]
  4. METHYPHENADATE [Concomitant]
  5. MILTOWN [Concomitant]
  6. PREVACID [Concomitant]

REACTIONS (2)
  - AKATHISIA [None]
  - RESTLESSNESS [None]
